FAERS Safety Report 10528068 (Version 18)
Quarter: 2016Q3

REPORT INFORMATION
  Report Type: Spontaneous
  Country: US (occurrence: US)
  Receive Date: 20141020
  Receipt Date: 20160729
  Transmission Date: 20161109
  Serious: Yes (Hospitalization)
  Sender: FDA-Public Use
  Company Number: US-ACTELION-A-US2014-105567

PATIENT
  Age: 74 Year
  Sex: Male

DRUGS (2)
  1. RIOCIGUAT [Concomitant]
     Active Substance: RIOCIGUAT
  2. OPSUMIT [Suspect]
     Active Substance: MACITENTAN
     Indication: PULMONARY ARTERIAL HYPERTENSION
     Dosage: 10 MG, QD
     Route: 048
     Dates: start: 20140925

REACTIONS (25)
  - Chronic obstructive pulmonary disease [Unknown]
  - Weight increased [Unknown]
  - Nausea [Unknown]
  - Pyrexia [Unknown]
  - Peripheral swelling [Unknown]
  - Dyspnoea [Unknown]
  - Right ventricular failure [Unknown]
  - Fluid retention [Unknown]
  - Dyspnoea [Unknown]
  - Retching [Unknown]
  - Internal haemorrhage [Unknown]
  - Atrial fibrillation [Unknown]
  - Nasopharyngitis [Unknown]
  - Gastrointestinal disorder [Unknown]
  - Pallor [Unknown]
  - Transfusion [Unknown]
  - Infusion site cellulitis [Unknown]
  - Blood count abnormal [Unknown]
  - Asthenia [Unknown]
  - Fatigue [Unknown]
  - Pulmonary oedema [Unknown]
  - Oedema [Unknown]
  - Gastrointestinal haemorrhage [Unknown]
  - Arteriovenous malformation [Unknown]
  - Sepsis [Unknown]

NARRATIVE: CASE EVENT DATE: 20141001
